FAERS Safety Report 7353520-4 (Version None)
Quarter: 2011Q1

REPORT INFORMATION
  Report Type: 
  Country: None (occurrence: None)
  Receive Date: 20110307
  Receipt Date: 20100517
  Transmission Date: 20110831
  Serious: No
  Sender: FDA-Public Use
  Company Number: AEUSA201000171

PATIENT
  Age: 63 Year
  Sex: Male
  Weight: 95.2554 kg

DRUGS (7)
  1. SPIRIVA [Concomitant]
  2. NORVASC [Concomitant]
  3. FLOVENT [Concomitant]
  4. ALBUTEROL [Concomitant]
  5. HYZAAR [Concomitant]
  6. PROLASTIN-C [Suspect]
     Indication: ALPHA-1 ANTI-TRYPSIN DEFICIENCY
     Dosage: ;IV
     Route: 042
     Dates: start: 20100401
  7. PROLASTIN [Suspect]
     Indication: ALPHA-1 ANTI-TRYPSIN DEFICIENCY
     Dosage: ;IV
     Route: 042
     Dates: start: 20080101

REACTIONS (2)
  - ACTIVITIES OF DAILY LIVING IMPAIRED [None]
  - FATIGUE [None]
